FAERS Safety Report 8591754-1 (Version None)
Quarter: 2012Q3

REPORT INFORMATION
  Report Type: 
  Country: None (occurrence: None)
  Receive Date: 20120814
  Receipt Date: 20120809
  Transmission Date: 20120928
  Serious: Yes (Hospitalization)
  Sender: FDA-Public Use
  Company Number: PHHY2012VE003293

PATIENT
  Sex: Female

DRUGS (3)
  1. ZOLEDRONOC ACID [Suspect]
     Indication: OSTEOPOROSIS
     Dosage: 5 MG, UNK
     Route: 042
     Dates: start: 20111101
  2. CALCIUM [Concomitant]
     Dosage: ONCE A DAY
     Route: 048
  3. VITAMINS NOS [Concomitant]
     Dosage: ONCE A DAY
     Route: 048

REACTIONS (1)
  - GAIT DISTURBANCE [None]
